FAERS Safety Report 16972970 (Version 2)
Quarter: 2019Q4

REPORT INFORMATION
  Report Type: Report from Study
  Country: None (occurrence: GR)
  Receive Date: 20191030
  Receipt Date: 20191112
  Transmission Date: 20200122
  Serious: Yes (Other)
  Sender: FDA-Public Use
  Company Number: GR-ABBVIE-19K-066-2978554-00

PATIENT
  Age: 68 Year
  Sex: Male
  Weight: 73 kg

DRUGS (3)
  1. MADOPAR [Concomitant]
     Active Substance: BENSERAZIDE HYDROCHLORIDE\LEVODOPA
     Indication: PRODUCT USED FOR UNKNOWN INDICATION
     Dosage: (100+25)MG
     Route: 048
  2. DUODOPA [Suspect]
     Active Substance: CARBIDOPA\LEVODOPA
     Indication: PARKINSON^S DISEASE
     Dosage: MORNING DOSE: 6ML; CONTINUOUS RATE: 3.5ML/H; EXTRA DOSE: 1.7ML
     Route: 050
     Dates: start: 201402, end: 20191014
  3. TENORETIC [Concomitant]
     Active Substance: ATENOLOL\CHLORTHALIDONE
     Indication: HYPERTENSION
     Route: 048

REACTIONS (7)
  - Embedded device [Recovered/Resolved]
  - Abscess [Recovered/Resolved]
  - Medical device removal [Recovered/Resolved]
  - Stoma site discharge [Recovered/Resolved]
  - Medical device site injury [Recovered/Resolved]
  - Device occlusion [Unknown]
  - Stoma site odour [Not Recovered/Not Resolved]

NARRATIVE: CASE EVENT DATE: 20191022
